FAERS Safety Report 16900542 (Version 1)
Quarter: 2019Q4

REPORT INFORMATION
  Report Type: Spontaneous
  Country: US (occurrence: US)
  Receive Date: 20191009
  Receipt Date: 20191009
  Transmission Date: 20200122
  Serious: Yes (Other)
  Sender: FDA-Public Use
  Company Number: US-SA-2018SA305760

PATIENT
  Age: 76 Year
  Sex: Female

DRUGS (1)
  1. LANTUS SOLOSTAR [Suspect]
     Active Substance: INSULIN GLARGINE
     Indication: TYPE 2 DIABETES MELLITUS
     Dosage: 8 IU, BID
     Route: 065
     Dates: start: 201810, end: 20190820

REACTIONS (4)
  - Wrong technique in device usage process [Unknown]
  - Renal impairment [Unknown]
  - Visual impairment [Unknown]
  - Inappropriate schedule of product administration [Unknown]
